FAERS Safety Report 8767248 (Version 2)
Quarter: 2013Q2

REPORT INFORMATION
  Report Type: Spontaneous
  Country: US (occurrence: US)
  Receive Date: 20120904
  Receipt Date: 20130429
  Transmission Date: 20140414
  Serious: Yes (Hospitalization, Other)
  Sender: FDA-Public Use
  Company Number: US-JNJFOC-20110311912

PATIENT
  Age: 54 Year
  Sex: Female

DRUGS (4)
  1. LEVAQUIN [Suspect]
     Indication: CYSTITIS
     Route: 048
  2. LEVAQUIN [Suspect]
     Indication: PNEUMONIA BACTERIAL
     Route: 048
  3. LEVAQUIN [Suspect]
     Indication: CYSTITIS
     Route: 042
  4. PREDNISONE [Suspect]
     Indication: PRODUCT USED FOR UNKNOWN INDICATION
     Route: 048

REACTIONS (3)
  - Trigger finger [Unknown]
  - Tendon rupture [Recovering/Resolving]
  - Depression [Unknown]
